FAERS Safety Report 12438134 (Version 1)
Quarter: 2016Q2

REPORT INFORMATION
  Report Type: Spontaneous
  Country: None (occurrence: AU)
  Receive Date: 20160606
  Receipt Date: 20160606
  Transmission Date: 20160815
  Serious: No
  Sender: FDA-Public Use
  Company Number: AU-CUMBERLAND PHARMACEUTICALS INC.-1053329

PATIENT

DRUGS (1)
  1. CALDOLOR [Suspect]
     Active Substance: IBUPROFEN

REACTIONS (1)
  - Thrombophlebitis superficial [Recovered/Resolved]
